FAERS Safety Report 9389078 (Version 2)
Quarter: 2013Q3

REPORT INFORMATION
  Report Type: Spontaneous
  Country: AU (occurrence: AU)
  Receive Date: 20130708
  Receipt Date: 20130712
  Transmission Date: 20140515
  Serious: Yes (Death, Hospitalization)
  Sender: FDA-Public Use
  Company Number: AU-CELGENEUS-008-C4047-13051338

PATIENT
  Age: 56 Year
  Sex: Male

DRUGS (3)
  1. CC-4047 [Suspect]
     Indication: PLASMA CELL MYELOMA
     Dosage: 4 MILLIGRAM
     Route: 048
     Dates: start: 20110417, end: 20110510
  2. ARANESP [Concomitant]
     Indication: ANAEMIA
     Route: 058
     Dates: start: 20110530
  3. VALTREX [Concomitant]
     Indication: INFECTION PROPHYLAXIS
     Route: 048
     Dates: start: 20110530

REACTIONS (2)
  - Bronchopulmonary aspergillosis [Fatal]
  - Plasma cell myeloma [Not Recovered/Not Resolved]
